FAERS Safety Report 5592420-7 (Version None)
Quarter: 2008Q1

REPORT INFORMATION
  Report Type: 
  Country: None (occurrence: None)
  Receive Date: 20080115
  Receipt Date: 20080103
  Transmission Date: 20080703
  Serious: Yes (Other)
  Sender: FDA-Public Use
  Company Number: AU-PFIZER INC-2007096855

PATIENT
  Sex: Female

DRUGS (1)
  1. LYRICA [Suspect]
     Indication: NERVE INJURY

REACTIONS (14)
  - AMNESIA [None]
  - ANXIETY [None]
  - DISORIENTATION [None]
  - FATIGUE [None]
  - FEELING DRUNK [None]
  - HANGOVER [None]
  - HEADACHE [None]
  - IMPAIRED DRIVING ABILITY [None]
  - INCREASED APPETITE [None]
  - INSOMNIA [None]
  - MOOD SWINGS [None]
  - NAUSEA [None]
  - TREMOR [None]
  - WEIGHT INCREASED [None]
